FAERS Safety Report 24682559 (Version 3)
Quarter: 2025Q1

REPORT INFORMATION
  Report Type: Spontaneous
  Country: KR (occurrence: KR)
  Receive Date: 20241130
  Receipt Date: 20250110
  Transmission Date: 20250408
  Serious: Yes (Life-Threatening, Hospitalization, Other)
  Sender: ALEXION PHARMACEUTICALS
  Company Number: KR-ASTRAZENECA-202411GLO023911KR

PATIENT
  Age: 66 Year
  Weight: 55.5 kg

DRUGS (8)
  1. TICAGRELOR [Suspect]
     Active Substance: TICAGRELOR
     Indication: Acute coronary syndrome
     Dosage: 90 MILLIGRAM, BID
  2. TICAGRELOR [Suspect]
     Active Substance: TICAGRELOR
     Dosage: 90 MILLIGRAM, BID
     Route: 048
  3. TICAGRELOR [Suspect]
     Active Substance: TICAGRELOR
     Dosage: 90 MILLIGRAM, BID
  4. TICAGRELOR [Suspect]
     Active Substance: TICAGRELOR
     Dosage: 90 MILLIGRAM, BID
     Route: 048
  5. ROSUVASTATIN [Concomitant]
     Active Substance: ROSUVASTATIN
     Indication: Dyslipidaemia
     Route: 048
  6. ROSUVASTATIN [Concomitant]
     Active Substance: ROSUVASTATIN
  7. ASPIRIN [Concomitant]
     Active Substance: ASPIRIN
     Route: 048
  8. ASPIRIN [Concomitant]
     Active Substance: ASPIRIN

REACTIONS (2)
  - Drug-induced liver injury [Recovered/Resolved]
  - Liver function test abnormal [Recovered/Resolved]
